FAERS Safety Report 14250094 (Version 2)
Quarter: 2017Q4

REPORT INFORMATION
  Report Type: Spontaneous
  Country: US (occurrence: US)
  Receive Date: 20171205
  Receipt Date: 20171220
  Transmission Date: 20180321
  Serious: Yes (Hospitalization, Other)
  Sender: FDA-Public Use
  Company Number: US-VISTAPHARM, INC.-VER201711-001169

PATIENT
  Age: 25 Year
  Sex: Male

DRUGS (8)
  1. LAMOTRIGINE. [Concomitant]
     Active Substance: LAMOTRIGINE
     Indication: SEIZURE
  2. NALOXONE [Concomitant]
     Active Substance: NALOXONE
     Route: 041
  3. LAMOTRIGINE. [Concomitant]
     Active Substance: LAMOTRIGINE
     Indication: PROPHYLAXIS
     Route: 048
  4. PHENYTOIN. [Suspect]
     Active Substance: PHENYTOIN
     Indication: SEIZURE
     Dosage: 100 MG EXTENDED TABLET (1 TABLET ON DAY 2)
     Route: 048
  5. PHENYTOIN. [Suspect]
     Active Substance: PHENYTOIN
     Dosage: 100 MG EXTENDED TABLET (2 TABLET SON DAY 2)
     Route: 048
  6. FOSPHENYTOIN [Suspect]
     Active Substance: FOSPHENYTOIN\FOSPHENYTOIN SODIUM
     Indication: SEIZURE
     Dosage: 126 IV ML SOLUTION (1290 MG PE) WAS INFUSED OVER 240 MIN ON DAY 3
     Route: 042
  7. LEVETIRACETAM. [Concomitant]
     Active Substance: LEVETIRACETAM
     Indication: PROPHYLAXIS
     Route: 048
  8. LEVETIRACETAM. [Concomitant]
     Active Substance: LEVETIRACETAM
     Indication: SEIZURE

REACTIONS (3)
  - Hallucination, visual [Unknown]
  - Mental status changes [Unknown]
  - Sinus arrest [Recovered/Resolved]
